FAERS Safety Report 4815027-5 (Version None)
Quarter: 2005Q4

REPORT INFORMATION
  Report Type: 
  Country: None (occurrence: None)
  Receive Date: 20051028
  Receipt Date: 20051020
  Transmission Date: 20060501
  Serious: Yes (Other)
  Sender: FDA-Public Use
  Company Number: SK-ABBOTT-05P-260-0315009-00

PATIENT
  Sex: Female
  Weight: 48 kg

DRUGS (4)
  1. KLACID I.V. [Suspect]
     Indication: EAR INFECTION
     Route: 042
     Dates: start: 20051020, end: 20051020
  2. SINTOPHILIN [Concomitant]
     Indication: EAR INFECTION
     Dosage: 1-1-1
     Route: 048
  3. AMBROXOL HYDROCHLORIDE [Concomitant]
     Indication: EAR INFECTION
     Dosage: 1-1-1
     Route: 048
  4. NASAL DROPS [Concomitant]
     Indication: EAR INFECTION
     Route: 045

REACTIONS (2)
  - INFUSION SITE ERYTHEMA [None]
  - INFUSION SITE PHLEBITIS [None]
